FAERS Safety Report 7731606-X (Version None)
Quarter: 2011Q3

REPORT INFORMATION
  Report Type: 
  Country: None (occurrence: None)
  Receive Date: 20110906
  Receipt Date: 20110603
  Transmission Date: 20111222
  Serious: No
  Sender: FDA-Public Use
  Company Number: US-AMGEN-USASP2011028835

PATIENT
  Age: 63 Year
  Sex: Female

DRUGS (21)
  1. ALBUTEROL [Concomitant]
  2. PROAIR HFA [Concomitant]
  3. PROLIA [Suspect]
     Indication: OSTEOPOROSIS POSTMENOPAUSAL
     Dosage: 60 MG, Q6MO
     Dates: start: 20110512
  4. ENBREL [Concomitant]
     Dosage: 25 MG, Q2WK
     Dates: start: 20020101
  5. TRAZODONE HCL [Concomitant]
     Dosage: 1 MG, QD
  6. METHOTREXATE [Concomitant]
     Dosage: UNK MG, UNK
  7. LIPITOR [Concomitant]
  8. FLOVENT [Concomitant]
  9. VITAMIN D [Concomitant]
  10. VIVELLE [Concomitant]
  11. HYDROCHLOROTHIAZIDE [Concomitant]
  12. VITAMIN E                          /00110501/ [Concomitant]
  13. PREDNISONE [Concomitant]
  14. ASPIRIN [Concomitant]
  15. FOLIC ACID [Concomitant]
     Dosage: UNK
  16. PLAVIX [Concomitant]
  17. SPIRIVA [Concomitant]
  18. DURAGESIC-100 [Concomitant]
  19. CELEBREX [Concomitant]
  20. ACYCLOVIR [Concomitant]
  21. CALCIUM CARBONATE [Concomitant]

REACTIONS (5)
  - GAIT DISTURBANCE [None]
  - BONE PAIN [None]
  - MYALGIA [None]
  - ARTHRALGIA [None]
  - PAIN IN EXTREMITY [None]
